FAERS Safety Report 4559766-2 (Version None)
Quarter: 2005Q1

REPORT INFORMATION
  Report Type: 
  Country: None (occurrence: None)
  Receive Date: 20050113
  Receipt Date: 20041122
  Transmission Date: 20050727
  Serious: Yes (Hospitalization)
  Sender: FDA-Public Use
  Company Number: 2004UW24410

PATIENT
  Age: 80 Year
  Sex: Male

DRUGS (10)
  1. CRESTOR [Suspect]
     Dosage: 5 MG PO
     Route: 048
  2. PREVPAC [Suspect]
  3. MICARDIS HCT [Concomitant]
  4. NORVASC [Concomitant]
  5. LEXAPRO [Concomitant]
  6. XANAX [Concomitant]
  7. PROSCAR [Concomitant]
  8. FLOMAX [Concomitant]
  9. BIAXIN [Concomitant]
  10. HYDROCHLOROTHIAZIDE [Concomitant]

REACTIONS (2)
  - LIVER FUNCTION TEST ABNORMAL [None]
  - RHABDOMYOLYSIS [None]
